FAERS Safety Report 8350540 (Version 2)
Quarter: 2012Q4

REPORT INFORMATION
  Report Type: 
  Country: RU (occurrence: RU)
  Receive Date: 20120124
  Receipt Date: 20120910
  Transmission Date: 20130627
  Serious: Yes (Other)
  Sender: FDA-Public Use
  Company Number: RU-BAYER-2011-116136

PATIENT
  Age: 32 Year
  Sex: Female
  Weight: 56 kg

DRUGS (1)
  1. QLAIRA [Suspect]
     Indication: CONTRACEPTION
     Dosage: UNK
     Route: 048
     Dates: start: 201105, end: 201109

REACTIONS (4)
  - Pregnancy on oral contraceptive [Not Recovered/Not Resolved]
  - Abortion threatened [Recovered/Resolved]
  - Exposure during pregnancy [None]
  - Drug dose omission [None]
